FAERS Safety Report 10384865 (Version 2)
Quarter: 2014Q4

REPORT INFORMATION
  Report Type: Spontaneous
  Country: JP (occurrence: None)
  Receive Date: 20140812
  Receipt Date: 20141125
  Transmission Date: 20150528
  Serious: Yes (Other)
  Sender: FDA-Public Use
  Company Number: JP-20140303

PATIENT
  Age: 70 Year
  Sex: Male

DRUGS (4)
  1. MITOMYCIN. [Concomitant]
     Active Substance: MITOMYCIN
  2. GELATIN [Concomitant]
     Active Substance: GELATIN
  3. FARMORUBICIN [Concomitant]
     Active Substance: EPIRUBICIN HYDROCHLORIDE
  4. LIPIODOL ULTRA FLUID [Suspect]
     Active Substance: ETHIODIZED OIL
     Indication: THERAPEUTIC EMBOLISATION
     Route: 013
     Dates: start: 20050228, end: 20050228

REACTIONS (4)
  - Renal failure [None]
  - Tumour lysis syndrome [None]
  - Product use issue [None]
  - Hyperphosphataemia [None]

NARRATIVE: CASE EVENT DATE: 20050228
